FAERS Safety Report 4971131-2 (Version None)
Quarter: 2006Q1

REPORT INFORMATION
  Report Type: 
  Country: None (occurrence: None)
  Receive Date: 20060227
  Receipt Date: 20050323
  Transmission Date: 20060701
  Serious: Yes (Disabling)
  Sender: FDA-Public Use
  Company Number: WAES 0503USA04068

PATIENT
  Age: 50 Year
  Sex: Male

DRUGS (7)
  1. ZOCOR [Suspect]
     Indication: CARDIOVASCULAR DISORDER
     Dosage: DAILY/PO
     Route: 048
     Dates: start: 20050308, end: 20050320
  2. CAPTOPRIL [Concomitant]
  3. DIAZEPAM [Concomitant]
  4. GLYBURIDE [Concomitant]
  5. METFORMIN [Concomitant]
  6. METOPROLOL [Concomitant]
  7. RANITIDINE [Concomitant]

REACTIONS (2)
  - ABDOMINAL PAIN UPPER [None]
  - MEDICATION ERROR [None]
